FAERS Safety Report 8458843-3 (Version None)
Quarter: 2012Q2

REPORT INFORMATION
  Report Type: 
  Country: None (occurrence: None)
  Receive Date: 20120622
  Receipt Date: 20120614
  Transmission Date: 20120825
  Serious: Yes (Life-Threatening, Hospitalization)
  Sender: FDA-Public Use
  Company Number: GB-SANOFI-AVENTIS-2012SA030179

PATIENT
  Age: 42 Year
  Sex: Female

DRUGS (12)
  1. VENLAFAXINE HYDROCHOLRIDE [Suspect]
     Route: 048
  2. HYDROXYCHLOROQUINE SULFATE [Suspect]
     Indication: RHEUMATOID ARTHRITIS
     Route: 048
  3. NYSTATIN [Concomitant]
  4. OMEPRAZOLE [Suspect]
     Route: 048
  5. MICONAZOLE [Concomitant]
  6. FLUCLOXACILLIN [Concomitant]
  7. METRONIDAZOLE [Concomitant]
  8. SULFASALAZINE [Suspect]
     Route: 048
  9. METHOTREXATE [Suspect]
     Route: 048
  10. BENZYDAMINE [Concomitant]
  11. SCHERIPROCT [Concomitant]
  12. GABAPENTIN [Suspect]
     Route: 048

REACTIONS (7)
  - CONTUSION [None]
  - HAEMATEMESIS [None]
  - BLOOD DISORDER [None]
  - THROMBOCYTOPENIA [None]
  - DIARRHOEA [None]
  - FULL BLOOD COUNT ABNORMAL [None]
  - ABDOMINAL PAIN [None]
